FAERS Safety Report 4431893-X (Version None)
Quarter: 2004Q3

REPORT INFORMATION
  Report Type: 
  Country: None (occurrence: None)
  Receive Date: 20040819
  Receipt Date: 20040806
  Transmission Date: 20050211
  Serious: Yes (Hospitalization)
  Sender: FDA-Public Use
  Company Number: 2004-BP-06690MX

PATIENT
  Age: 68 Year
  Sex: Male

DRUGS (1)
  1. SECOTEX CAPSULES 0.4MG (KA) (TAMSULOSIN HYDROCHLORIDE) [Suspect]
     Indication: BENIGN PROSTATIC HYPERPLASIA
     Dosage: 0.4 MG (0.4 MG, 1 KA O.D.)
     Route: 048

REACTIONS (1)
  - DRUG INEFFECTIVE [None]
